FAERS Safety Report 20786697 (Version 1)
Quarter: 2022Q2

REPORT INFORMATION
  Report Type: Spontaneous
  Country: US (occurrence: US)
  Receive Date: 20220505
  Receipt Date: 20220505
  Transmission Date: 20220721
  Serious: Yes (Hospitalization, Other)
  Sender: FDA-Public Use
  Company Number: US-SUN PHARMACEUTICAL INDUSTRIES LTD-2022R1-334852

PATIENT
  Age: 64 Year
  Sex: Female

DRUGS (2)
  1. ANASTROZOLE [Suspect]
     Active Substance: ANASTROZOLE
     Indication: Breast cancer
     Dosage: UNK
     Route: 065
     Dates: start: 201609
  2. LETROZOLE [Suspect]
     Active Substance: LETROZOLE
     Indication: Arthralgia
     Dosage: UNK
     Route: 065

REACTIONS (2)
  - Myopathy [Recovering/Resolving]
  - Polymyositis [Recovering/Resolving]
